FAERS Safety Report 5634211-4 (Version None)
Quarter: 2008Q1

REPORT INFORMATION
  Report Type: 
  Country: None (occurrence: None)
  Receive Date: 20080219
  Receipt Date: 20080206
  Transmission Date: 20080703
  Serious: Yes (Other)
  Sender: FDA-Public Use
  Company Number: 2008SP002499

PATIENT
  Age: 85 Year
  Sex: Female

DRUGS (2)
  1. BETAMETHASONE SODIUM PHOSPHATE [Suspect]
     Indication: ANTIINFLAMMATORY THERAPY
     Dosage: QID; OPH
     Route: 047
     Dates: start: 20061214, end: 20061227
  2. CRAVIT (CON.) [Concomitant]

REACTIONS (3)
  - CALCINOSIS [None]
  - CORNEAL DEPOSITS [None]
  - NONSPECIFIC REACTION [None]
